FAERS Safety Report 9605042 (Version 2)
Quarter: 2013Q4

REPORT INFORMATION
  Report Type: Spontaneous
  Country: US (occurrence: US)
  Receive Date: 20131008
  Receipt Date: 20131101
  Transmission Date: 20140711
  Serious: No
  Sender: FDA-Public Use
  Company Number: US-009507513-1309USA007956

PATIENT
  Age: 19 Year
  Sex: Female

DRUGS (1)
  1. NEXPLANON [Suspect]
     Indication: CONTRACEPTION
     Dosage: EVERY 3 YEARS, 1 ROD
     Route: 059
     Dates: start: 20130212

REACTIONS (4)
  - Menstruation irregular [Not Recovered/Not Resolved]
  - Menorrhagia [Recovered/Resolved]
  - Amenorrhoea [Not Recovered/Not Resolved]
  - Application site mass [Not Recovered/Not Resolved]
